FAERS Safety Report 19458894 (Version 1)
Quarter: 2021Q2

REPORT INFORMATION
  Report Type: Spontaneous
  Country: US (occurrence: US)
  Receive Date: 20210624
  Receipt Date: 20210624
  Transmission Date: 20210717
  Serious: No
  Sender: FDA-Public Use
  Company Number: US-MYLANLABS-2021M1013227

PATIENT
  Sex: Female
  Weight: 61 kg

DRUGS (1)
  1. CLONIDINE TRANSDERMAL SYSTEM [Suspect]
     Active Substance: CLONIDINE
     Indication: HYPERTENSION
     Dosage: 01. MILLIGRAM, QD (WEAR ONE PATCH FOR SEVEN DAYS)
     Route: 062

REACTIONS (6)
  - Product adhesion issue [Unknown]
  - Application site pruritus [Recovering/Resolving]
  - Application site erythema [Recovering/Resolving]
  - Product quality issue [Unknown]
  - Application site irritation [Recovering/Resolving]
  - Device use issue [Unknown]
